FAERS Safety Report 24018467 (Version 1)
Quarter: 2024Q2

REPORT INFORMATION
  Report Type: Spontaneous
  Country: IT (occurrence: IT)
  Receive Date: 20240627
  Receipt Date: 20240627
  Transmission Date: 20240716
  Serious: No
  Sender: FDA-Public Use
  Company Number: IT-ALKEM LABORATORIES LIMITED-IT-ALKEM-2024-05330

PATIENT
  Age: 71 Year
  Sex: Male
  Weight: 78 kg

DRUGS (7)
  1. LINEZOLID [Interacting]
     Active Substance: LINEZOLID
     Indication: Streptococcal infection
     Dosage: 600 MILLIGRAM, BID (EVERY 12 HOURS)
     Route: 048
  2. LINEZOLID [Interacting]
     Active Substance: LINEZOLID
     Dosage: 600 MILLIGRAM, BID (EVERY 8 HOURS)
     Route: 048
  3. VENLAFAXINE [Interacting]
     Active Substance: VENLAFAXINE HYDROCHLORIDE
     Indication: Product used for unknown indication
     Dosage: 75 MILLIGRAM, QD (EVERY 24 HOUR)
     Route: 065
  4. LEVOFLOXACIN [Suspect]
     Active Substance: LEVOFLOXACIN
     Indication: Streptococcal infection
     Dosage: UNK
     Route: 065
  5. PIPERACILLIN SODIUM\TAZOBACTAM SODIUM [Suspect]
     Active Substance: PIPERACILLIN SODIUM\TAZOBACTAM SODIUM
     Indication: Streptococcal infection
     Dosage: UNK
     Route: 065
  6. PRAMIPEXOLE [Concomitant]
     Active Substance: PRAMIPEXOLE\PRAMIPEXOLE DIHYDROCHLORIDE
     Indication: Product used for unknown indication
     Dosage: 0.45 MILLIGRAM, QD (EVERY 24 HOUR)
     Route: 065
  7. ENOXAPARIN [Concomitant]
     Active Substance: ENOXAPARIN
     Indication: Product used for unknown indication
     Dosage: 4000 INTERNATIONAL UNIT, QD (EVERY 24 HOUR)
     Route: 065

REACTIONS (3)
  - Drug level decreased [Recovered/Resolved]
  - Drug interaction [Unknown]
  - Therapy non-responder [Unknown]
